FAERS Safety Report 20685914 (Version 1)
Quarter: 2022Q2

REPORT INFORMATION
  Report Type: Spontaneous
  Country: US (occurrence: US)
  Receive Date: 20220407
  Receipt Date: 20220407
  Transmission Date: 20220721
  Serious: Yes (Other)
  Sender: FDA-Public Use
  Company Number: US-OCULAR THERAPEUTIX-2022OCX00015

PATIENT
  Age: 79 Year
  Sex: Female
  Weight: 77.098 kg

DRUGS (6)
  1. DEXTENZA [Suspect]
     Active Substance: DEXAMETHASONE
     Indication: Cataract operation
     Dosage: 0.4 MG INSERTED INTO PUNCTUM OF BOTH EYES
     Dates: start: 20220210
  2. COMPOUNDED PRED MOXI BROM [Concomitant]
     Dosage: UNK
     Dates: start: 202202, end: 2022
  3. LEVOTHYROXINE [Concomitant]
     Active Substance: LEVOTHYROXINE
  4. VALSARTAN [Concomitant]
     Active Substance: VALSARTAN
  5. ATORVASTATIN [Concomitant]
     Active Substance: ATORVASTATIN
  6. SYNTHROID [Concomitant]
     Active Substance: LEVOTHYROXINE SODIUM

REACTIONS (1)
  - Dacryocanaliculitis [Recovered/Resolved]

NARRATIVE: CASE EVENT DATE: 20220324
